FAERS Safety Report 4905629-X (Version None)
Quarter: 2006Q1

REPORT INFORMATION
  Report Type: 
  Country: None (occurrence: None)
  Receive Date: 20060203
  Receipt Date: 20060120
  Transmission Date: 20060701
  Serious: Yes (Death)
  Sender: FDA-Public Use
  Company Number: 2006S1000570

PATIENT
  Age: 39 Year
  Sex: Male

DRUGS (2)
  1. CLOZAPINE [Suspect]
     Dosage: 100 MG; QAM; ORAL; 300 MG; QD; ORAL
     Route: 048
     Dates: start: 20030601
  2. CLOZAPINE [Suspect]
     Dosage: 100 MG; QAM; ORAL; 300 MG; QD; ORAL
     Route: 048
     Dates: start: 20030601

REACTIONS (1)
  - COLON CANCER METASTATIC [None]
